FAERS Safety Report 7332967-6 (Version None)
Quarter: 2011Q1

REPORT INFORMATION
  Report Type: 
  Country: None (occurrence: None)
  Receive Date: 20110304
  Receipt Date: 20110301
  Transmission Date: 20110831
  Serious: Yes (Death, Hospitalization, Disabling)
  Sender: FDA-Public Use
  Company Number: DE-GENZYME-CAMP-1001408

PATIENT
  Age: 77 Year
  Sex: Female

DRUGS (10)
  1. CAMPATH [Suspect]
     Indication: PERIPHERAL T-CELL LYMPHOMA UNSPECIFIED
     Dosage: 30 MG, QD
     Route: 058
     Dates: start: 20090910, end: 20091022
  2. RITUXIMAB [Concomitant]
     Indication: PRODUCT USED FOR UNKNOWN INDICATION
     Dosage: UNK
  3. ENOXAPARIN SODIUM [Concomitant]
     Indication: DEEP VEIN THROMBOSIS
     Dosage: 40 MG, QD
     Route: 058
     Dates: start: 20090401, end: 20100415
  4. TRIMETHOPRIM + SULFAMETHOXAZOLE [Concomitant]
     Indication: ANTIFUNGAL PROPHYLAXIS
     Dosage: 960 MG, BID
     Route: 048
     Dates: start: 20090701
  5. FONDAPARINUX SODIUM [Concomitant]
     Indication: DEEP VEIN THROMBOSIS
     Dosage: 5 MG, QD
     Route: 058
     Dates: start: 20100505, end: 20100522
  6. CYCLOPHOSPHAMIDE [Suspect]
     Indication: PERIPHERAL T-CELL LYMPHOMA UNSPECIFIED
     Dosage: 1200 MG, ONCE
     Route: 042
     Dates: start: 20090908, end: 20090908
  7. DOXORUBICIN [Suspect]
     Indication: PERIPHERAL T-CELL LYMPHOMA UNSPECIFIED
     Dosage: 80 MG, ONCE
     Route: 065
     Dates: start: 20090908, end: 20090908
  8. VINCRISTINE [Suspect]
     Indication: PERIPHERAL T-CELL LYMPHOMA UNSPECIFIED
     Dosage: 2 MG, ONCE
     Route: 065
     Dates: start: 20090820, end: 20090820
  9. PREDNISONE [Suspect]
     Indication: PERIPHERAL T-CELL LYMPHOMA UNSPECIFIED
     Dosage: 100 MG, QDX5
     Route: 048
     Dates: start: 20090908, end: 20090912
  10. FILGRASTIM [Suspect]
     Indication: PERIPHERAL T-CELL LYMPHOMA UNSPECIFIED
     Dosage: 30000 IE, QD
     Route: 058
     Dates: start: 20090911, end: 20090919

REACTIONS (2)
  - DIFFUSE LARGE B-CELL LYMPHOMA [None]
  - PULMONARY EMBOLISM [None]
